FAERS Safety Report 5056090-9 (Version None)
Quarter: 2006Q3

REPORT INFORMATION
  Report Type: 
  Country: None (occurrence: None)
  Receive Date: 20060718
  Receipt Date: 20060718
  Transmission Date: 20061208
  Serious: No
  Sender: FDA-Public Use
  Company Number: None

PATIENT
  Sex: Female
  Weight: 84.369 kg

DRUGS (2)
  1. PERCOCET-5 [Suspect]
     Dosage: 2 TABS Q 6 PRN PO
     Route: 048
     Dates: start: 20060607, end: 20060711
  2. OXYCONTIN [Suspect]
     Dosage: 2 TABS TID PO
     Route: 048
     Dates: start: 20030101, end: 20050901

REACTIONS (3)
  - NAUSEA [None]
  - THERAPEUTIC RESPONSE UNEXPECTED WITH DRUG SUBSTITUTION [None]
  - VOMITING [None]
